FAERS Safety Report 21097755 (Version 1)
Quarter: 2022Q3

REPORT INFORMATION
  Report Type: Report from Study
  Country: DE (occurrence: DE)
  Receive Date: 20220719
  Receipt Date: 20220719
  Transmission Date: 20221026
  Serious: Yes (Death, Other)
  Sender: FDA-Public Use
  Company Number: DE-BRISTOL-MYERS SQUIBB COMPANY-2022-026154

PATIENT
  Age: 80 Year
  Sex: Male

DRUGS (36)
  1. NIVOLUMAB [Suspect]
     Active Substance: NIVOLUMAB
     Indication: Lung neoplasm malignant
     Dosage: 240 , TIME 13:00 - 14:00
     Route: 065
     Dates: start: 20170517, end: 20170517
  2. NIVOLUMAB [Suspect]
     Active Substance: NIVOLUMAB
     Dosage: 240,  TIME -- 13:13- 14:15
     Route: 065
     Dates: start: 20170531, end: 20170531
  3. NIVOLUMAB [Suspect]
     Active Substance: NIVOLUMAB
     Dosage: 240 , TIME : 10:00- 11:00
     Route: 065
     Dates: start: 20170613, end: 20170613
  4. NIVOLUMAB [Suspect]
     Active Substance: NIVOLUMAB
     Dosage: 240 , TIME 12:15  -  13:15
     Route: 065
     Dates: start: 20170628, end: 20170628
  5. NIVOLUMAB [Suspect]
     Active Substance: NIVOLUMAB
     Dosage: 240 , TIME  : 12:25 - 13:30
     Route: 065
     Dates: start: 20170713, end: 20170713
  6. NIVOLUMAB [Suspect]
     Active Substance: NIVOLUMAB
     Dosage: 240 , TIME -10:45 - 11:45
     Route: 048
     Dates: start: 20170727, end: 20170727
  7. NIVOLUMAB [Suspect]
     Active Substance: NIVOLUMAB
     Dosage: 240 , 12:00 - 13:10
     Route: 048
     Dates: start: 20170810, end: 20170810
  8. NIVOLUMAB [Suspect]
     Active Substance: NIVOLUMAB
     Route: 065
     Dates: start: 20170824, end: 20170824
  9. NIVOLUMAB [Suspect]
     Active Substance: NIVOLUMAB
     Dosage: 240 , TIME:12:30 - 14:00
     Route: 048
     Dates: start: 20170907, end: 20170907
  10. NIVOLUMAB [Suspect]
     Active Substance: NIVOLUMAB
     Dosage: 240 , TIME 11:00- 12:00
     Route: 065
     Dates: start: 20171006, end: 20171006
  11. NIVOLUMAB [Suspect]
     Active Substance: NIVOLUMAB
     Dosage: 240 , TIME 11:00- 12:00
     Route: 065
     Dates: start: 20171019, end: 20171019
  12. NIVOLUMAB [Suspect]
     Active Substance: NIVOLUMAB
     Dosage: 240, TIME 15:30 -16:30
     Route: 065
     Dates: start: 20171102, end: 20171102
  13. NIVOLUMAB [Suspect]
     Active Substance: NIVOLUMAB
     Dosage: 240 , TIME -13:50 -14:50
     Route: 065
     Dates: start: 20171116, end: 20171116
  14. NIVOLUMAB [Suspect]
     Active Substance: NIVOLUMAB
     Dosage: 240 , TIME 14:00 -15:00
     Route: 065
     Dates: start: 20171130, end: 20171130
  15. NIVOLUMAB [Suspect]
     Active Substance: NIVOLUMAB
     Dosage: 240  , 13:00- 14:00
     Route: 065
     Dates: start: 20171214, end: 20171214
  16. NIVOLUMAB [Suspect]
     Active Substance: NIVOLUMAB
     Dosage: 240 ,  TIME -10:45- 11:45
     Route: 065
     Dates: start: 20180104, end: 20180104
  17. NIVOLUMAB [Suspect]
     Active Substance: NIVOLUMAB
     Dosage: 240 ,  TIME : 14:30 -  14:30
     Route: 065
     Dates: start: 20180201, end: 20180201
  18. NIVOLUMAB [Suspect]
     Active Substance: NIVOLUMAB
     Dosage: 240 , TIME - 13:00 - 14:00
     Route: 065
     Dates: start: 20180215, end: 20180215
  19. NIVOLUMAB [Suspect]
     Active Substance: NIVOLUMAB
     Dosage: 240 , TIME 13:15 - 14:15
     Route: 065
     Dates: start: 20180301, end: 20180301
  20. NIVOLUMAB [Suspect]
     Active Substance: NIVOLUMAB
     Dosage: 240, TIME: 12:45 - 13:45
     Route: 065
     Dates: start: 20180315, end: 20180315
  21. NIVOLUMAB [Suspect]
     Active Substance: NIVOLUMAB
     Dosage: 240, TIME :12:15 - 13:15
     Route: 065
     Dates: start: 20180329, end: 20180329
  22. NIVOLUMAB [Suspect]
     Active Substance: NIVOLUMAB
     Dosage: 240 , TIME :10:45- 11:45
     Route: 065
     Dates: start: 20180412, end: 20180412
  23. NIVOLUMAB [Suspect]
     Active Substance: NIVOLUMAB
     Dosage: 240 ,  TIME :12:00 -13:00
     Route: 065
     Dates: start: 20170921, end: 20170921
  24. NIVOLUMAB [Suspect]
     Active Substance: NIVOLUMAB
     Dosage: 240 , TIME -10:45-11:45
     Route: 065
     Dates: start: 20180118, end: 20180118
  25. NIVOLUMAB [Suspect]
     Active Substance: NIVOLUMAB
     Route: 042
     Dates: start: 20170517, end: 20180512
  26. NALOXONE HYDROCHLORIDE\TILIDINE HYDROCHLORIDE [Concomitant]
     Active Substance: NALOXONE HYDROCHLORIDE\TILIDINE HYDROCHLORIDE
     Indication: Product used for unknown indication
     Route: 065
  27. FOLIC ACID [Concomitant]
     Active Substance: FOLIC ACID
     Indication: Product used for unknown indication
     Route: 065
  28. METFORMIN [Concomitant]
     Active Substance: METFORMIN HYDROCHLORIDE
     Indication: Product used for unknown indication
     Route: 065
  29. SIMVASTATIN [Concomitant]
     Active Substance: SIMVASTATIN
     Indication: Product used for unknown indication
     Route: 065
  30. LOSAR DENK [Concomitant]
     Indication: Product used for unknown indication
     Route: 065
  31. TORSEMIDE [Concomitant]
     Active Substance: TORSEMIDE
     Indication: Product used for unknown indication
     Route: 065
  32. RIOPAN [DIMETICONE;MAGALDRATE] [Concomitant]
     Indication: Product used for unknown indication
     Route: 065
  33. PANTOPRAZOLE [Concomitant]
     Active Substance: PANTOPRAZOLE
     Indication: Product used for unknown indication
     Route: 065
  34. FENOTEROL HYDROBROMIDE\IPRATROPIUM BROMIDE [Concomitant]
     Active Substance: FENOTEROL HYDROBROMIDE\IPRATROPIUM BROMIDE
     Indication: Product used for unknown indication
     Route: 065
  35. SPIRIVA [Concomitant]
     Active Substance: TIOTROPIUM BROMIDE MONOHYDRATE
     Indication: Product used for unknown indication
     Route: 065
  36. CORTICOSTEROID NOS [Concomitant]
     Active Substance: CORTICOSTEROID NOS
     Indication: Product used for unknown indication
     Route: 065

REACTIONS (1)
  - Pneumonia [Fatal]

NARRATIVE: CASE EVENT DATE: 20180423
